FAERS Safety Report 8287448-2 (Version None)
Quarter: 2012Q2

REPORT INFORMATION
  Report Type: 
  Country: None (occurrence: None)
  Receive Date: 20120411
  Receipt Date: 20120402
  Transmission Date: 20120825
  Serious: Yes (Hospitalization)
  Sender: FDA-Public Use
  Company Number: 2012SP018061

PATIENT
  Age: 62 Year
  Sex: Female
  Weight: 49 kg

DRUGS (6)
  1. REBETOL [Suspect]
     Indication: HEPATITIS C
     Dosage: 200 MG;QD;PO
     Route: 048
     Dates: start: 20120206, end: 20120227
  2. PEG-INTRON [Suspect]
     Indication: HEPATITIS C
     Dosage: 1.5 MCG/KG;QW;SC ; 1.5 MCG/KG;QW;SC
     Route: 058
     Dates: start: 20120302
  3. PEG-INTRON [Suspect]
     Indication: HEPATITIS C
     Dosage: 1.5 MCG/KG;QW;SC ; 1.5 MCG/KG;QW;SC
     Route: 058
     Dates: start: 20120206, end: 20120227
  4. TELAVIC (ANTIVIRALS NOS) [Suspect]
     Indication: HEPATITIS C
     Dosage: 1500 MG;QD;PO
     Route: 049
     Dates: start: 20120203, end: 20120227
  5. ZETIA [Concomitant]
  6. THYROID TAB [Concomitant]

REACTIONS (9)
  - WEIGHT INCREASED [None]
  - PYREXIA [None]
  - INSOMNIA [None]
  - VOMITING [None]
  - SENSORY DISTURBANCE [None]
  - EYE PRURITUS [None]
  - FACE OEDEMA [None]
  - DRUG ERUPTION [None]
  - RENAL IMPAIRMENT [None]
